FAERS Safety Report 24761889 (Version 2)
Quarter: 2024Q4

REPORT INFORMATION
  Report Type: Spontaneous
  Country: FR (occurrence: FR)
  Receive Date: 20241221
  Receipt Date: 20241231
  Transmission Date: 20250114
  Serious: Yes (Hospitalization, Other)
  Sender: AUROBINDO
  Company Number: FR-EMA-DD-20241205-7482661-090142

PATIENT
  Age: 37 Year
  Sex: Female

DRUGS (4)
  1. CAPECITABINE [Suspect]
     Active Substance: CAPECITABINE
     Indication: Breast cancer
     Dosage: 2000 MILLIGRAM/SQ. METER(2000 MG/M2 IN TWO DIVIDED DOSES ON D1-14 OF A 21D CYCLE)
     Route: 048
  2. CAPECITABINE [Suspect]
     Active Substance: CAPECITABINE
     Indication: Metastases to bone
     Dosage: 2000 MILLIGRAM/SQ. METER(2,000 MG/M^2 IN 2 DIVIDED DOSES ON DAY 1 THROUGH 14 OF A 21-DAY CYCLE)
     Route: 048
  3. LAPATINIB [Suspect]
     Active Substance: LAPATINIB
     Indication: Metastases to bone
     Dosage: 1250 MILLIGRAM, ONCE A DAY, CYCLICAL THERAPY OF (1250 MG, DAILY)
     Route: 048
  4. LAPATINIB [Concomitant]
     Active Substance: LAPATINIB
     Indication: Breast cancer
     Dosage: 1250 MILLIGRAM, ONCE A DAY
     Route: 065

REACTIONS (10)
  - Abdominal pain [Unknown]
  - Asthenia [Unknown]
  - Diarrhoea [Unknown]
  - Dysaesthesia [Unknown]
  - Maternal exposure during pregnancy [Unknown]
  - Palmar-plantar erythrodysaesthesia syndrome [Unknown]
  - Product dose omission issue [Unknown]
  - Inappropriate schedule of product administration [Unknown]
  - Abortion induced [Recovered/Resolved]
  - Exposure during pregnancy [Recovered/Resolved]
